FAERS Safety Report 10228374 (Version 1)
Quarter: 2014Q2

REPORT INFORMATION
  Report Type: Spontaneous
  Country: US (occurrence: None)
  Receive Date: 20140609
  Receipt Date: 20140609
  Transmission Date: 20141212
  Serious: Yes (Hospitalization, Disabling, Other)
  Sender: FDA-Public Use
  Company Number: None

PATIENT
  Age: 29 Year
  Sex: Male
  Weight: 104.33 kg

DRUGS (1)
  1. RISPERDAL [Suspect]
     Indication: EMOTIONAL DISTRESS
     Dosage: 2 PILLS ONCE DAILY, TAKEN BY MOUTH.
     Route: 048

REACTIONS (7)
  - Anger [None]
  - Crying [None]
  - Inappropriate affect [None]
  - Breast enlargement [None]
  - Dysuria [None]
  - Gastrointestinal motility disorder [None]
  - Gynaecomastia [None]
